FAERS Safety Report 9182254 (Version 2)
Quarter: 2014Q2

REPORT INFORMATION
  Report Type: Spontaneous
  Country: US (occurrence: None)
  Receive Date: 20120621
  Receipt Date: 20140514
  Transmission Date: 20141212
  Serious: Yes (Hospitalization)
  Sender: FDA-Public Use
  Company Number: 036792

PATIENT
  Age: 49 Year
  Sex: Male

DRUGS (1)
  1. CIMZIA [Suspect]
     Indication: CROHN^S DISEASE
     Dosage: 200 MG 1X2 WEEKS SUBCUTANEOUS)
     Route: 058
     Dates: start: 20100428

REACTIONS (2)
  - Crohn^s disease [None]
  - Inappropriate schedule of drug administration [None]
